FAERS Safety Report 7013614-X (Version None)
Quarter: 2010Q3

REPORT INFORMATION
  Report Type: 
  Country: None (occurrence: None)
  Receive Date: 20100924
  Receipt Date: 20100914
  Transmission Date: 20110219
  Serious: Yes (Other)
  Sender: FDA-Public Use
  Company Number: FR-ABBOTT-10P-056-0647381-00

PATIENT
  Sex: Female
  Weight: 50 kg

DRUGS (2)
  1. HUMIRA [Suspect]
     Indication: RHEUMATOID ARTHRITIS
     Route: 058
     Dates: start: 20100510
  2. PIROXICAM [Suspect]
     Indication: RHEUMATOID ARTHRITIS
     Dosage: LONG TERM TREATMENT, ON REQUEST
     Route: 048
     Dates: end: 20100527

REACTIONS (3)
  - DEAFNESS NEUROSENSORY [None]
  - HEARING IMPAIRED [None]
  - SUDDEN HEARING LOSS [None]
